FAERS Safety Report 9026029 (Version 1)
Quarter: 2013Q1

REPORT INFORMATION
  Report Type: Report from Study
  Country: US (occurrence: US)
  Receive Date: 20130122
  Receipt Date: 20130122
  Transmission Date: 20140127
  Serious: Yes (Other)
  Sender: FDA-Public Use
  Company Number: US-ROCHE-1179200

PATIENT
  Age: 58 Year
  Sex: Female
  Weight: 91.5 kg

DRUGS (8)
  1. BEVACIZUMAB [Suspect]
     Indication: OVARIAN EPITHELIAL CANCER
     Dosage: LAST DOSE PRIOR TO SAE: 25/OCT/2012
     Route: 042
     Dates: start: 20121004
  2. CARBOPLATIN [Suspect]
     Indication: OVARIAN EPITHELIAL CANCER
     Dosage: DOSE: AUC 5, LAST DOSE PRIOR TO SAE: 20/NOV/2012
     Route: 042
     Dates: start: 20121004
  3. PACLITAXEL [Suspect]
     Indication: OVARIAN EPITHELIAL CANCER
     Dosage: LAST DOSE PRIOR TO SAE: 20/NOV/2012
     Route: 042
     Dates: start: 20121004
  4. COUMADIN [Concomitant]
  5. GABAPENTIN [Concomitant]
  6. LEVOTHYROXINE [Concomitant]
  7. LISINOPRIL [Concomitant]
  8. TRAMADOL [Concomitant]

REACTIONS (1)
  - Periodontal disease [Recovering/Resolving]
